FAERS Safety Report 4583425-3 (Version None)
Quarter: 2005Q1

REPORT INFORMATION
  Report Type: 
  Country: None (occurrence: None)
  Receive Date: 20050211
  Receipt Date: 20050202
  Transmission Date: 20050727
  Serious: Yes (Hospitalization)
  Sender: FDA-Public Use
  Company Number: 2005024797

PATIENT
  Age: 76 Year
  Sex: Male

DRUGS (3)
  1. LIPITOR [Suspect]
     Indication: DYSLIPIDAEMIA
     Dosage: 10 MG (10 MG, 1 IN 1D), ORAL
     Route: 048
     Dates: start: 20040201
  2. ACETYLSALICYLIC ACID SRT [Concomitant]
  3. FUROSEMIDE [Concomitant]

REACTIONS (2)
  - HEART RATE INCREASED [None]
  - VENOUS OCCLUSION [None]
